FAERS Safety Report 6642840-4 (Version None)
Quarter: 2010Q1

REPORT INFORMATION
  Report Type: 
  Country: None (occurrence: None)
  Receive Date: 20100319
  Receipt Date: 20100311
  Transmission Date: 20100710
  Serious: Yes (Other)
  Sender: FDA-Public Use
  Company Number: US-PFIZER INC-2010033847

PATIENT
  Sex: Female
  Weight: 75.296 kg

DRUGS (5)
  1. LIPITOR [Suspect]
     Indication: BLOOD CHOLESTEROL
     Dosage: 20 MG, 1X/DAY
  2. ACTONEL [Suspect]
     Indication: BONE DISORDER
     Dosage: 150 MG, MONTHLY
  3. ZETIA [Concomitant]
  4. PREVACID [Concomitant]
     Indication: REFLUX GASTRITIS
  5. BENICAR [Concomitant]
     Indication: HYPERTENSION

REACTIONS (7)
  - ALOPECIA [None]
  - ARTHROPATHY [None]
  - COUGH [None]
  - DRUG INEFFECTIVE [None]
  - GAIT DISTURBANCE [None]
  - JOINT STIFFNESS [None]
  - NASOPHARYNGITIS [None]
